FAERS Safety Report 25384186 (Version 1)
Quarter: 2025Q2

REPORT INFORMATION
  Report Type: Spontaneous
  Country: US (occurrence: US)
  Receive Date: 20250602
  Receipt Date: 20250602
  Transmission Date: 20250716
  Serious: Yes (Other)
  Sender: CHIESI
  Company Number: US-CHIESI-2025CHF00978

PATIENT
  Age: 54 Year
  Sex: Female

DRUGS (2)
  1. ELFABRIO [Suspect]
     Active Substance: PEGUNIGALSIDASE ALFA-IWXJ
     Indication: Fabry^s disease
     Dosage: 70 MILLIGRAM, QOW
     Route: 065
     Dates: start: 20250122
  2. CLARITIN [Concomitant]
     Active Substance: LORATADINE
     Indication: Premedication

REACTIONS (5)
  - Neuropathy peripheral [Not Recovered/Not Resolved]
  - Sinus headache [Not Recovered/Not Resolved]
  - Sinus congestion [Not Recovered/Not Resolved]
  - Fatigue [Not Recovered/Not Resolved]
  - Nausea [Not Recovered/Not Resolved]

NARRATIVE: CASE EVENT DATE: 20250206
